FAERS Safety Report 19968682 (Version 1)
Quarter: 2021Q4

REPORT INFORMATION
  Report Type: Spontaneous
  Country: US (occurrence: US)
  Receive Date: 20211019
  Receipt Date: 20211019
  Transmission Date: 20220304
  Serious: No
  Sender: FDA-Public Use
  Company Number: US-PFIZER INC-2021366894

PATIENT
  Age: 56 Year
  Sex: Female

DRUGS (1)
  1. DOXYCYCLINE HYCLATE [Suspect]
     Active Substance: DOXYCYCLINE HYCLATE
     Indication: Rash
     Dosage: 100 MG, 2X/DAY (EVERY TWELVE HOURS FOR 7 DAYS)
     Route: 048

REACTIONS (3)
  - Subcutaneous abscess [Unknown]
  - Drug ineffective for unapproved indication [Unknown]
  - Off label use [Unknown]
